FAERS Safety Report 25013183 (Version 3)
Quarter: 2025Q2

REPORT INFORMATION
  Report Type: Spontaneous
  Country: US (occurrence: None)
  Receive Date: 20250226
  Receipt Date: 20250522
  Transmission Date: 20250717
  Serious: No
  Sender: AXSOME THERAPEUTICS, INC.
  Company Number: US-Axsome Therapeutics, Inc.-AXS202501-000091

PATIENT
  Age: 36 Year
  Sex: Female

DRUGS (1)
  1. AUVELITY [Suspect]
     Active Substance: BUPROPION HYDROCHLORIDE\DEXTROMETHORPHAN HYDROBROMIDE
     Indication: Major depression
     Route: 065

REACTIONS (8)
  - Abdominal discomfort [Unknown]
  - Illness [Unknown]
  - COVID-19 [Unknown]
  - Abdominal discomfort [Unknown]
  - Influenza [Unknown]
  - Dysphonia [Unknown]
  - Cough [Unknown]
  - Hypersensitivity [Unknown]
